FAERS Safety Report 4577731-6 (Version None)
Quarter: 2005Q1

REPORT INFORMATION
  Report Type: 
  Country: None (occurrence: None)
  Receive Date: 20050208
  Receipt Date: 20050124
  Transmission Date: 20050727
  Serious: Yes (Life-Threatening, Hospitalization, Other)
  Sender: FDA-Public Use
  Company Number: 2004-0007871

PATIENT
  Age: 61 Year
  Sex: Male
  Weight: 46 kg

DRUGS (4)
  1. VIREAD [Suspect]
     Indication: HIV INFECTION
     Dosage: 300 MG, 1 IN 1 D, ORAL
     Route: 048
     Dates: start: 20040601, end: 20040811
  2. SUSTIVA [Concomitant]
  3. ZIAGEN [Concomitant]
  4. PLAVIX [Concomitant]

REACTIONS (28)
  - ACIDOSIS [None]
  - ANOREXIA [None]
  - BLOOD CHLORIDE DECREASED [None]
  - BLOOD CHLORIDE INCREASED [None]
  - BLOOD PHOSPHORUS INCREASED [None]
  - BLOOD SODIUM DECREASED [None]
  - CEREBRAL HAEMORRHAGE [None]
  - DEHYDRATION [None]
  - DIALYSIS [None]
  - DYSPHAGIA [None]
  - FANCONI SYNDROME ACQUIRED [None]
  - FEELING ABNORMAL [None]
  - GLUCOSE URINE PRESENT [None]
  - HEPARIN-INDUCED THROMBOCYTOPENIA [None]
  - HYPERKALAEMIA [None]
  - HYPOCALCAEMIA [None]
  - HYPOKALAEMIA [None]
  - HYPOPHOSPHATAEMIA [None]
  - INFECTION [None]
  - METABOLIC DISORDER [None]
  - NAUSEA [None]
  - NEOPLASM MALIGNANT [None]
  - OESOPHAGEAL CANDIDIASIS [None]
  - PROTEINURIA [None]
  - RENAL FAILURE ACUTE [None]
  - VENOUS PRESSURE JUGULAR DECREASED [None]
  - VOMITING [None]
  - WEIGHT DECREASED [None]
